FAERS Safety Report 9094953 (Version 1)
Quarter: 2013Q1

REPORT INFORMATION
  Report Type: Spontaneous
  Country: JP (occurrence: JP)
  Receive Date: 20130220
  Receipt Date: 20130220
  Transmission Date: 20140127
  Serious: Yes (Other)
  Sender: FDA-Public Use
  Company Number: JP-009507513-1302JPN008342

PATIENT
  Age: 5 Year
  Sex: Female
  Weight: 18.5 kg

DRUGS (1)
  1. FAMOTIDINE [Suspect]
     Indication: PFAPA SYNDROME
     Dosage: UNK

REACTIONS (2)
  - PFAPA syndrome [Unknown]
  - Drug ineffective for unapproved indication [Unknown]
